FAERS Safety Report 9464124 (Version 1)
Quarter: 2013Q3

REPORT INFORMATION
  Report Type: Spontaneous
  Country: DE (occurrence: DE)
  Receive Date: 20130819
  Receipt Date: 20130819
  Transmission Date: 20140515
  Serious: Yes (Other)
  Sender: FDA-Public Use
  Company Number: DE-SANOFI-AVENTIS-2013SA080288

PATIENT
  Age: 32 Year
  Sex: Female
  Weight: 69 kg

DRUGS (4)
  1. LORATADINE [Suspect]
     Indication: URTICARIA
     Route: 048
  2. TELFAST [Suspect]
     Indication: URTICARIA
     Route: 048
  3. FOLIC ACID [Concomitant]
     Indication: PROPHYLAXIS OF NEURAL TUBE DEFECT
     Route: 048
  4. ALLERGOSPASMIN [Concomitant]
     Indication: ASTHMA
     Route: 055

REACTIONS (2)
  - Abortion spontaneous [Unknown]
  - Exposure during pregnancy [Unknown]
